FAERS Safety Report 23587449 (Version 1)
Quarter: 2024Q1

REPORT INFORMATION
  Report Type: Spontaneous
  Country: BE (occurrence: BE)
  Receive Date: 20240301
  Receipt Date: 20240301
  Transmission Date: 20240409
  Serious: Yes (Other)
  Sender: FDA-Public Use
  Company Number: BE-AMERICAN REGENT INC-2024000695

PATIENT
  Age: 50 Year
  Sex: Female

DRUGS (1)
  1. FERINJECT [Suspect]
     Active Substance: FERRIC CARBOXYMALTOSE
     Indication: Product used for unknown indication
     Dosage: 1000 MILLIGRAM
     Route: 042
     Dates: start: 20230606, end: 20230606

REACTIONS (3)
  - Malaise [Unknown]
  - Pain in extremity [Unknown]
  - Tachycardia [Unknown]

NARRATIVE: CASE EVENT DATE: 20230606
